FAERS Safety Report 7990931-8 (Version None)
Quarter: 2011Q4

REPORT INFORMATION
  Report Type: 
  Country: None (occurrence: None)
  Receive Date: 20111219
  Receipt Date: 20111201
  Transmission Date: 20120403
  Serious: Yes (Other)
  Sender: FDA-Public Use
  Company Number: US-ROCHE-1018134

PATIENT
  Sex: Male

DRUGS (1)
  1. LUCENTIS [Suspect]
     Indication: PRODUCT USED FOR UNKNOWN INDICATION
     Route: 050
     Dates: start: 20060101

REACTIONS (10)
  - RETINAL PALLOR [None]
  - ESCHERICHIA INFECTION [None]
  - VISUAL ACUITY REDUCED [None]
  - PUPILLARY DISORDER [None]
  - PRODUCT QUALITY ISSUE [None]
  - ENDOPHTHALMITIS [None]
  - FIBROSIS [None]
  - IRIS DISORDER [None]
  - EYE DISORDER [None]
  - TRANSMISSION OF AN INFECTIOUS AGENT VIA A MEDICINAL PRODUCT [None]
